FAERS Safety Report 10022211 (Version 1)
Quarter: 2014Q1

REPORT INFORMATION
  Report Type: Spontaneous
  Country: BR (occurrence: BR)
  Receive Date: 20140319
  Receipt Date: 20140319
  Transmission Date: 20141002
  Serious: Yes (Other)
  Sender: FDA-Public Use
  Company Number: BR-PFIZER INC-2014072765

PATIENT
  Age: 60 Year
  Sex: Male
  Weight: 99 kg

DRUGS (3)
  1. XALATAN [Suspect]
     Indication: GLAUCOMA
     Dosage: 1 DROP IN BOTH EYES, 1X/DAY
     Route: 047
     Dates: start: 20050417, end: 201309
  2. LIPITOR [Concomitant]
     Indication: BLOOD CHOLESTEROL INCREASED
     Dosage: 1 UNIT STRENGTH 10 MG A DAY
     Dates: start: 20130410
  3. VIAGRA [Concomitant]
     Dosage: 1 UNIT A DAY
     Dates: start: 20110530

REACTIONS (1)
  - Cataract [Unknown]
